FAERS Safety Report 8946843 (Version 1)
Quarter: 2012Q4

REPORT INFORMATION
  Report Type: 
  Country: US (occurrence: US)
  Receive Date: 20121205
  Receipt Date: 20121205
  Transmission Date: 20130627
  Serious: Yes (Other)
  Sender: FDA-Public Use
  Company Number: US-GLAXOSMITHKLINE-A1003244A

PATIENT
  Age: 70 Year
  Sex: Male

DRUGS (3)
  1. AVANDAMET [Suspect]
     Indication: DIABETES MELLITUS
     Route: 048
     Dates: start: 2003, end: 200809
  2. BLOOD PRESSURE MEDICATION [Concomitant]
  3. STATINS [Concomitant]

REACTIONS (1)
  - Myocardial infarction [Recovered/Resolved]
